FAERS Safety Report 8942791 (Version 1)
Quarter: 2012Q4

REPORT INFORMATION
  Report Type: 
  Country: FR (occurrence: FR)
  Receive Date: 20121204
  Receipt Date: 20121204
  Transmission Date: 20130627
  Serious: Yes (Death, Hospitalization, Other)
  Sender: FDA-Public Use
  Company Number: FR-PFIZER INC-2012298331

PATIENT
  Age: 64 Year
  Sex: Male

DRUGS (12)
  1. ACUITEL [Suspect]
     Indication: HYPERTENSION ARTERIAL
     Dosage: 1 DF, daily
     Route: 048
     Dates: end: 201101
  2. NEORAL [Suspect]
     Indication: PROPHYLAXIS AGAINST TRANSPLANT REJECTION
     Dosage: UNK
     Dates: start: 201012, end: 201101
  3. EXJADE [Concomitant]
     Dosage: UNK
  4. FERRIPROX [Concomitant]
     Dosage: UNK
  5. BISOPROLOL [Concomitant]
     Dosage: 5 mg
  6. COUMADINE [Concomitant]
     Dosage: 4 mg, daily
  7. BUSILVEX [Concomitant]
     Dosage: UNK
  8. FLUDARABINE [Concomitant]
     Dosage: UNK
  9. CELLCEPT [Concomitant]
     Dosage: UNK
  10. TRAMADOL [Concomitant]
     Dosage: UNK
  11. ACUPAN [Concomitant]
     Dosage: UNK
  12. XATRAL [Suspect]
     Dosage: UNK
     Dates: start: 20110104

REACTIONS (3)
  - Renal failure acute [Recovered/Resolved]
  - Mucosal inflammation [Unknown]
  - Toxicity to various agents [None]
